FAERS Safety Report 20661874 (Version 1)
Quarter: 2022Q2

REPORT INFORMATION
  Report Type: Spontaneous
  Country: FR (occurrence: FR)
  Receive Date: 20220401
  Receipt Date: 20220401
  Transmission Date: 20220720
  Serious: Yes (Hospitalization, Other)
  Sender: FDA-Public Use
  Company Number: None

PATIENT
  Age: 66 Year
  Sex: Male
  Weight: 90 kg

DRUGS (4)
  1. CISPLATIN [Suspect]
     Active Substance: CISPLATIN
     Indication: Neoplasm malignant
     Dosage: 79MG,DURATION 28DAYS
     Route: 042
     Dates: start: 20211227, end: 20220124
  2. ONDANSETRON [Concomitant]
     Active Substance: ONDANSETRON
     Dosage: 8MG, DURATION 28DAYS
     Dates: start: 20211227, end: 20220124
  3. APREPITANT [Concomitant]
     Active Substance: APREPITANT
     Dosage: 125 MG, 80 MG, 80 MG J0, J1, J2,DURATION 28DAYS
     Route: 048
     Dates: start: 20211227, end: 20220124
  4. OLANZAPINE [Concomitant]
     Active Substance: OLANZAPINE
     Dosage: 5MG, DURATION 28DAYS
     Route: 048
     Dates: start: 20211227, end: 20220124

REACTIONS (8)
  - Deep vein thrombosis [Recovered/Resolved]
  - Renal failure [Not Recovered/Not Resolved]
  - Pulmonary embolism [Not Recovered/Not Resolved]
  - Hyperthermia [Recovered/Resolved]
  - Thrombocytopenia [Recovering/Resolving]
  - Neutropenia [Recovering/Resolving]
  - Leukopenia [Recovering/Resolving]
  - Anaemia [Recovering/Resolving]

NARRATIVE: CASE EVENT DATE: 20220107
